FAERS Safety Report 9291578 (Version 2)
Quarter: 2014Q1

REPORT INFORMATION
  Report Type: Spontaneous
  Country: GB (occurrence: GB)
  Receive Date: 20130515
  Receipt Date: 20140131
  Transmission Date: 20141002
  Serious: Yes (Death)
  Sender: FDA-Public Use
  Company Number: GB-WATSON-2013-08306

PATIENT
  Age: 39 Year
  Sex: Male

DRUGS (2)
  1. CITALOPRAM HYDROBROMIDE (UNKNOWN) [Suspect]
     Indication: DEPRESSION
     Dosage: 20 MG, DAILY
     Route: 048
     Dates: start: 20111128
  2. AMISULPRIDE (UNKNOWN) [Interacting]
     Indication: SCHIZOPHRENIA
     Dosage: 400 MG, BID
     Route: 065

REACTIONS (2)
  - Death [Fatal]
  - Drug interaction [Fatal]
